FAERS Safety Report 10492813 (Version 1)
Quarter: 2014Q4

REPORT INFORMATION
  Report Type: Spontaneous
  Country: IT (occurrence: IT)
  Receive Date: 20141002
  Receipt Date: 20141002
  Transmission Date: 20150528
  Serious: Yes (Other)
  Sender: FDA-Public Use
  Company Number: IT-WATSON-2014-21078

PATIENT
  Age: 29 Day
  Sex: Female
  Weight: 4 kg

DRUGS (3)
  1. GENTAMICIN (UNKNOWN) [Suspect]
     Active Substance: GENTAMICIN
     Indication: SEPSIS
     Dosage: 60 MG, DAILY
     Route: 042
     Dates: start: 20121118, end: 20121118
  2. UNASYN [Concomitant]
     Active Substance: AMPICILLIN SODIUM\SULBACTAM SODIUM
     Dosage: 75 MG, DAILY
     Route: 042
     Dates: start: 20121118, end: 20121118
  3. UNASYN [Concomitant]
     Active Substance: AMPICILLIN SODIUM\SULBACTAM SODIUM
     Indication: SEPSIS
     Dosage: 150 MG, DAILY
     Route: 042
     Dates: start: 20121117, end: 20121117

REACTIONS (1)
  - Transaminases increased [Recovered/Resolved]

NARRATIVE: CASE EVENT DATE: 20121118
